FAERS Safety Report 12742696 (Version 1)
Quarter: 2016Q3

REPORT INFORMATION
  Report Type: Spontaneous
  Country: US (occurrence: US)
  Receive Date: 20160913
  Receipt Date: 20160913
  Transmission Date: 20161109
  Serious: Yes (Hospitalization)
  Sender: FDA-Public Use
  Company Number: None

PATIENT
  Age: 68 Year
  Sex: Male
  Weight: 72.4 kg

DRUGS (1)
  1. HEPARIN [Suspect]
     Active Substance: HEPARIN SODIUM
     Indication: PULMONARY EMBOLISM
     Dosage: 850 UNITS OTHER IV
     Route: 042
     Dates: start: 20160818, end: 20160820

REACTIONS (3)
  - Brain midline shift [None]
  - Intracranial mass [None]
  - Haemorrhage intracranial [None]

NARRATIVE: CASE EVENT DATE: 20160805
